FAERS Safety Report 12112608 (Version 1)
Quarter: 2016Q1

REPORT INFORMATION
  Report Type: Spontaneous
  Country: JP (occurrence: JP)
  Receive Date: 20160225
  Receipt Date: 20160225
  Transmission Date: 20160526
  Serious: Yes (Death)
  Sender: FDA-Public Use
  Company Number: JP-CELGENE-JPN-2016015023

PATIENT
  Age: 64 Year
  Sex: Male
  Weight: 82 kg

DRUGS (7)
  1. ABRAXANE [Suspect]
     Active Substance: PACLITAXEL
     Route: 041
     Dates: start: 20151210, end: 20151224
  2. GENINAX [Suspect]
     Active Substance: GARENOXACIN MESYLATE
     Indication: UPPER RESPIRATORY TRACT INFLAMMATION
     Route: 048
     Dates: start: 201511
  3. ABRAXANE [Suspect]
     Active Substance: PACLITAXEL
     Indication: NON-SMALL CELL LUNG CANCER METASTATIC
     Route: 041
     Dates: start: 20150722
  4. GOSHAJINKIGAN [Suspect]
     Active Substance: HERBALS
     Indication: PERIPHERAL SENSORY NEUROPATHY
     Route: 065
     Dates: start: 20151015
  5. GOSHAJINKIGAN [Suspect]
     Active Substance: HERBALS
     Route: 048
     Dates: start: 201511, end: 20160103
  6. GENINAX [Suspect]
     Active Substance: GARENOXACIN MESYLATE
     Indication: BRONCHITIS
     Route: 048
     Dates: start: 20151230, end: 20160103
  7. ABRAXANE [Suspect]
     Active Substance: PACLITAXEL
     Dosage: 1000 MILLIGRAM
     Route: 041
     Dates: start: 20151112

REACTIONS (3)
  - Peripheral sensory neuropathy [Unknown]
  - Interstitial lung disease [Fatal]
  - Disseminated intravascular coagulation [Fatal]

NARRATIVE: CASE EVENT DATE: 20151001
